FAERS Safety Report 9913094 (Version 2)
Quarter: 2014Q1

REPORT INFORMATION
  Report Type: Spontaneous
  Country: FR (occurrence: None)
  Receive Date: 20140214
  Receipt Date: 20140311
  Transmission Date: 20141002
  Serious: Yes (Hospitalization)
  Sender: FDA-Public Use
  Company Number: ACET20140002

PATIENT
  Age: 86 Year
  Sex: Female

DRUGS (4)
  1. Q-PAP [Suspect]
     Indication: PRODUCT USED FOR UNKNOWN INDICATION
     Route: 048
  2. DABIGATRAN ETEXILATE [Suspect]
     Indication: PRODUCT USED FOR UNKNOWN INDICATION
     Route: 048
  3. CANDESARTAN CILEXETIL [Suspect]
     Indication: PRODUCT USED FOR UNKNOWN INDICATION
     Route: 048
  4. TRAMADOL [Suspect]
     Indication: PRODUCT USED FOR UNKNOWN INDICATION
     Route: 048

REACTIONS (10)
  - Speech disorder [None]
  - Renal failure acute [None]
  - Inflammation [None]
  - Kidney infection [None]
  - Acute coronary syndrome [None]
  - Hepatocellular injury [None]
  - Hepatotoxicity [None]
  - Bacterial pyelonephritis [None]
  - Escherichia infection [None]
  - Acute hepatic failure [None]
